FAERS Safety Report 22284814 (Version 3)
Quarter: 2023Q2

REPORT INFORMATION
  Report Type: Spontaneous
  Country: DE (occurrence: DE)
  Receive Date: 20230504
  Receipt Date: 20230623
  Transmission Date: 20230722
  Serious: Yes (Death, Other)
  Sender: FDA-Public Use
  Company Number: DE-002147023-NVSC2023DE101693

PATIENT
  Sex: Male

DRUGS (3)
  1. CISPLATIN [Suspect]
     Active Substance: CISPLATIN
     Indication: Adenocarcinoma
     Dosage: UNK
     Route: 065
     Dates: start: 20201204, end: 20220817
  2. GEMCITABINE [Suspect]
     Active Substance: GEMCITABINE
     Indication: Adenocarcinoma
     Dosage: UNK
     Route: 065
     Dates: start: 20201204, end: 20220817
  3. OXALIPLATIN [Suspect]
     Active Substance: OXALIPLATIN
     Indication: Adenocarcinoma
     Dosage: UNK
     Route: 065
     Dates: start: 20201204, end: 20220817

REACTIONS (26)
  - Death [Fatal]
  - Paralysis [Unknown]
  - Thrombosis [Unknown]
  - Necrosis [Unknown]
  - Acute polyneuropathy [Unknown]
  - Renal impairment [Unknown]
  - Mucosal haemorrhage [Unknown]
  - Performance status decreased [Unknown]
  - Taste disorder [Unknown]
  - Oesophagitis [Unknown]
  - Skin disorder [Unknown]
  - Nail disorder [Unknown]
  - Fluid retention [Unknown]
  - Disturbance in attention [Unknown]
  - Motor dysfunction [Unknown]
  - Balance disorder [Unknown]
  - Visual impairment [Unknown]
  - Amnesia [Unknown]
  - Hypoaesthesia [Unknown]
  - Constipation [Unknown]
  - Sleep disorder [Unknown]
  - Fatigue [Unknown]
  - Stomatitis [Unknown]
  - Alopecia [Unknown]
  - Nausea [Unknown]
  - Asthenia [Unknown]

NARRATIVE: CASE EVENT DATE: 20221209
